FAERS Safety Report 16268646 (Version 2)
Quarter: 2020Q2

REPORT INFORMATION
  Report Type: Spontaneous
  Country: US (occurrence: US)
  Receive Date: 20190503
  Receipt Date: 20200622
  Transmission Date: 20200713
  Serious: Yes (Other)
  Sender: FDA-Public Use
  Company Number: US-ROCHE-2308606

PATIENT
  Age: 72 Year
  Sex: Female
  Weight: 62.2 kg

DRUGS (1)
  1. BONIVA [Suspect]
     Active Substance: IBANDRONATE SODIUM
     Indication: OSTEOPOROSIS
     Route: 048
     Dates: start: 200705, end: 200907

REACTIONS (6)
  - Tooth infection [Not Recovered/Not Resolved]
  - Tooth extraction [Not Recovered/Not Resolved]
  - Myelitis [Not Recovered/Not Resolved]
  - Bone loss [Not Recovered/Not Resolved]
  - Impaired healing [Not Recovered/Not Resolved]
  - Infection [Unknown]

NARRATIVE: CASE EVENT DATE: 201607
